FAERS Safety Report 5477737-9 (Version None)
Quarter: 2007Q3

REPORT INFORMATION
  Report Type: 
  Country: None (occurrence: None)
  Receive Date: 20070831
  Receipt Date: 20070720
  Transmission Date: 20080115
  Serious: No
  Sender: FDA-Public Use
  Company Number: PHEH2007US08914

PATIENT
  Age: 14 Year
  Sex: Female
  Weight: 41.3 kg

DRUGS (4)
  1. EXJADE [Suspect]
     Indication: IRON OVERLOAD
     Dosage: 750MG, QD, ORAL; 750 MG, QD, ORAL
     Route: 048
     Dates: start: 20060630
  2. EXJADE [Suspect]
     Indication: IRON OVERLOAD
     Dosage: 750MG, QD, ORAL; 750 MG, QD, ORAL
     Route: 048
     Dates: start: 20061201
  3. ZANTAC 150 [Concomitant]
  4. MULTIVITAMINS (ASCORBIC ACID, ERGOCALCIFEROL, FOLIC ACID, NICOTINAMIDE [Concomitant]

REACTIONS (1)
  - ALOPECIA [None]
